FAERS Safety Report 10276979 (Version 3)
Quarter: 2015Q1

REPORT INFORMATION
  Report Type: Spontaneous
  Country: US (occurrence: US)
  Receive Date: 20140703
  Receipt Date: 20150203
  Transmission Date: 20150720
  Serious: Yes (Hospitalization, Disabling, Other)
  Sender: FDA-Public Use
  Company Number: US-009507513-1404USA004918

PATIENT
  Sex: Female

DRUGS (5)
  1. PREDNISONE. [Concomitant]
     Active Substance: PREDNISONE
     Indication: RHEUMATOID ARTHRITIS
     Dosage: UNK
     Dates: start: 200410
  2. ADVAIR HFA [Concomitant]
     Active Substance: FLUTICASONE PROPIONATE\SALMETEROL XINAFOATE
     Indication: INTERSTITIAL LUNG DISEASE
     Dosage: 1 DF, BID
     Dates: start: 2002
  3. PRILOSEC [Concomitant]
     Active Substance: OMEPRAZOLE MAGNESIUM
     Indication: PROPHYLAXIS
     Dosage: 20 MG, UNK
     Dates: start: 200411
  4. ALENDRONATE SODIUM. [Suspect]
     Active Substance: ALENDRONATE SODIUM
     Indication: OSTEOPOROSIS PROPHYLAXIS
     Dosage: 70 MG, QW
     Route: 048
     Dates: start: 20080305, end: 201101
  5. FOSAMAX [Suspect]
     Active Substance: ALENDRONATE SODIUM
     Indication: OSTEOPOROSIS PROPHYLAXIS
     Dosage: 70 MG, QW
     Route: 048
     Dates: start: 20050808, end: 201101

REACTIONS (33)
  - Rheumatoid arthritis [Not Recovered/Not Resolved]
  - Leukocytosis [Recovered/Resolved]
  - Hypoxia [Unknown]
  - Urinary tract infection [Unknown]
  - Pyrexia [Unknown]
  - Neuropathy peripheral [Unknown]
  - Somnolence [Unknown]
  - Intramedullary rod insertion [Unknown]
  - Medical device removal [Unknown]
  - Interstitial lung disease [Not Recovered/Not Resolved]
  - Cyst removal [Unknown]
  - Procedural hypotension [Recovered/Resolved]
  - Lung infiltration [Unknown]
  - Procedural haemorrhage [Recovered/Resolved]
  - Osteoporosis [Unknown]
  - Asthma [Unknown]
  - Muscle spasms [Unknown]
  - Femur fracture [Recovered/Resolved]
  - Postoperative fever [Recovered/Resolved]
  - Latent tuberculosis [Unknown]
  - Fracture nonunion [Recovered/Resolved]
  - Lens extraction [Unknown]
  - Intraocular lens implant [Unknown]
  - Spinal osteoarthritis [Unknown]
  - Blood potassium decreased [Unknown]
  - Abdominal pain upper [Unknown]
  - Intervertebral disc operation [Unknown]
  - Pneumonia [Unknown]
  - Osteopenia [Unknown]
  - Hyponatraemia [Not Recovered/Not Resolved]
  - Chest pain [Recovered/Resolved]
  - Depression [Unknown]
  - Headache [Unknown]

NARRATIVE: CASE EVENT DATE: 200509
